FAERS Safety Report 20526069 (Version 1)
Quarter: 2022Q1

REPORT INFORMATION
  Report Type: Spontaneous
  Country: US (occurrence: None)
  Receive Date: 20220225
  Receipt Date: 20220225
  Transmission Date: 20220423
  Serious: Yes (unspecified)
  Sender: FDA-Public Use
  Company Number: None

PATIENT
  Age: 76 Year
  Sex: Female
  Weight: 76.6 kg

DRUGS (4)
  1. RITUXAN [Suspect]
     Active Substance: RITUXIMAB
     Indication: Marginal zone lymphoma
     Dosage: OTHER FREQUENCY : ONE TIME INFUSION;?
     Route: 041
     Dates: start: 20220224, end: 20220224
  2. Duiphenhydramine 25 mg IVP [Concomitant]
     Dates: start: 20220224, end: 20220224
  3. Hydrocortisone 100 mg [Concomitant]
     Dates: start: 20220224, end: 20220224
  4. Demerol 12.5 mg [Concomitant]
     Dates: start: 20220224, end: 20220224

REACTIONS (4)
  - Infusion related reaction [None]
  - Chest discomfort [None]
  - Throat irritation [None]
  - Chills [None]

NARRATIVE: CASE EVENT DATE: 20220224
